FAERS Safety Report 8522790-9 (Version None)
Quarter: 2012Q3

REPORT INFORMATION
  Report Type: 
  Country: None (occurrence: None)
  Receive Date: 20120719
  Receipt Date: 20111103
  Transmission Date: 20120928
  Serious: Yes (Other)
  Sender: FDA-Public Use
  Company Number: GR-GILEAD-2011-0046214

PATIENT
  Age: 65 Year
  Sex: Male

DRUGS (1)
  1. ATRIPLA [Suspect]
     Indication: HIV INFECTION
     Dosage: UNK
     Dates: start: 20110201

REACTIONS (3)
  - DRUG INEFFECTIVE [None]
  - CD4 LYMPHOCYTES DECREASED [None]
  - VIRAL LOAD INCREASED [None]
